FAERS Safety Report 23903188 (Version 5)
Quarter: 2025Q2

REPORT INFORMATION
  Report Type: Spontaneous
  Country: CA (occurrence: CA)
  Receive Date: 20240527
  Receipt Date: 20250611
  Transmission Date: 20250717
  Serious: Yes (Other)
  Sender: CELLTRION
  Company Number: CA-PFIZER INC-PV202400022675

PATIENT

DRUGS (6)
  1. INFLECTRA [Suspect]
     Active Substance: INFLIXIMAB-DYYB
     Indication: Crohn^s disease
  2. INFLECTRA [Suspect]
     Active Substance: INFLIXIMAB-DYYB
  3. INFLECTRA [Suspect]
     Active Substance: INFLIXIMAB-DYYB
     Route: 042
     Dates: start: 20240517
  4. INFLECTRA [Suspect]
     Active Substance: INFLIXIMAB-DYYB
     Route: 042
     Dates: start: 20250204
  5. INFLECTRA [Suspect]
     Active Substance: INFLIXIMAB-DYYB
     Route: 042
     Dates: start: 20250320
  6. METHOTREXATE [Concomitant]
     Active Substance: METHOTREXATE

REACTIONS (5)
  - Arthralgia [Not Recovered/Not Resolved]
  - Bursitis [Not Recovered/Not Resolved]
  - Radiculopathy [Not Recovered/Not Resolved]
  - Tendon rupture [Unknown]
  - Viral rhinitis [Recovering/Resolving]

NARRATIVE: CASE EVENT DATE: 20240201
